FAERS Safety Report 22748401 (Version 3)
Quarter: 2023Q4

REPORT INFORMATION
  Report Type: Spontaneous
  Country: IN (occurrence: IN)
  Receive Date: 20230725
  Receipt Date: 20231026
  Transmission Date: 20240109
  Serious: Yes (Other)
  Sender: FDA-Public Use
  Company Number: IN-PFIZER INC-202200598444

PATIENT
  Age: 60 Year
  Sex: Female
  Weight: 60.5 kg

DRUGS (7)
  1. PALBOCICLIB [Suspect]
     Active Substance: PALBOCICLIB
     Indication: Breast cancer metastatic
     Dosage: 125 MG, 1X/DAY
     Route: 048
     Dates: start: 20220218
  2. PALBOCICLIB [Suspect]
     Active Substance: PALBOCICLIB
     Dosage: 125 MG, 1X/DAY
     Route: 048
     Dates: end: 202204
  3. PALBOCICLIB [Suspect]
     Active Substance: PALBOCICLIB
     Dosage: 100 MG, CYCLIC (21 DAYS WITH GAP OF 7 DAYS)
     Route: 048
     Dates: start: 20220421
  4. PALBOCICLIB [Suspect]
     Active Substance: PALBOCICLIB
     Dosage: 75 MG, 1X/DAY
     Route: 048
  5. LETROZOLE [Concomitant]
     Active Substance: LETROZOLE
     Dosage: 2.5 MG, 1X/DAY
  6. PANTOPRAZOLE SODIUM [Concomitant]
     Active Substance: PANTOPRAZOLE SODIUM
     Dosage: 1TAB DAILY EVERY [ILLEGIBLE] X 2 WEEKS;
  7. XGEVA [Concomitant]
     Active Substance: DENOSUMAB
     Dosage: 120 MG, EVERY 3 MONTHS

REACTIONS (8)
  - Breast cellulitis [Unknown]
  - Haematotoxicity [Unknown]
  - White blood cell count decreased [Unknown]
  - Weight increased [Unknown]
  - Full blood count decreased [Unknown]
  - Rash [Unknown]
  - Neoplasm progression [Unknown]
  - Skeletal injury [Unknown]
